FAERS Safety Report 26172732 (Version 1)
Quarter: 2025Q4

REPORT INFORMATION
  Report Type: Spontaneous
  Country: EU (occurrence: EU)
  Receive Date: 20251218
  Receipt Date: 20251218
  Transmission Date: 20260118
  Serious: Yes (Other)
  Sender: AUROBINDO
  Company Number: EU-TEVA-VS-3398747

PATIENT
  Age: 42 Year
  Sex: Female

DRUGS (2)
  1. ARIPIPRAZOLE [Suspect]
     Active Substance: ARIPIPRAZOLE
     Indication: Schizophrenia
     Dosage: 15 MILLIGRAM, ONCE A DAY
     Route: 065
     Dates: start: 2023, end: 2023
  2. OLANZAPINE [Suspect]
     Active Substance: OLANZAPINE
     Indication: Schizophrenia
     Dosage: 15 MILLIGRAM, ONCE A DAY
     Route: 065
     Dates: start: 2023

REACTIONS (6)
  - Schizophrenia [Recovered/Resolved]
  - Depressive symptom [Recovering/Resolving]
  - Abulia [Recovering/Resolving]
  - Hypersomnia [Recovering/Resolving]
  - Depressed mood [Recovering/Resolving]
  - Bulimia nervosa [Recovered/Resolved]

NARRATIVE: CASE EVENT DATE: 20230101
